FAERS Safety Report 9235018 (Version 2)
Quarter: 2013Q2

REPORT INFORMATION
  Report Type: Spontaneous
  Country: GB (occurrence: GB)
  Receive Date: 20130416
  Receipt Date: 20130506
  Transmission Date: 20140414
  Serious: Yes (Hospitalization, Other)
  Sender: FDA-Public Use
  Company Number: GB-PFIZER INC-2013114513

PATIENT
  Age: 28 Year
  Sex: Female

DRUGS (5)
  1. ONDANSETRON HCL [Suspect]
     Dosage: UNK
  2. DICLOFENAC [Suspect]
     Dosage: UNK
  3. VALOID INJECTION [Suspect]
     Indication: MALAISE
     Dosage: UNSPECIFIED UNIT, 3, 1, DAYS (TID)
     Route: 042
  4. BACLOFEN [Suspect]
     Dosage: UNK
  5. ENOXAPARIN [Suspect]
     Dosage: UNK

REACTIONS (7)
  - Wrong technique in drug usage process [Unknown]
  - Blood pressure decreased [Recovering/Resolving]
  - Dizziness [Recovering/Resolving]
  - Insomnia [Recovering/Resolving]
  - Panic reaction [Recovering/Resolving]
  - Dyspepsia [Recovering/Resolving]
  - Gastrointestinal disorder [Recovering/Resolving]
